FAERS Safety Report 8326277-8 (Version None)
Quarter: 2012Q2

REPORT INFORMATION
  Report Type: 
  Country: None (occurrence: None)
  Receive Date: 20120501
  Receipt Date: 20120420
  Transmission Date: 20120825
  Serious: Yes (Hospitalization)
  Sender: FDA-Public Use
  Company Number: US-JNJFOC-20120410218

PATIENT
  Age: 36 Year
  Sex: Female

DRUGS (11)
  1. LOXAPINE [Concomitant]
     Indication: BIPOLAR DISORDER
     Route: 065
  2. ACETAMINOPHEN [Suspect]
     Indication: URINARY TRACT INFECTION
     Route: 065
  3. SERTRALINE HYDROCHLORIDE [Concomitant]
     Indication: BIPOLAR DISORDER
     Route: 065
  4. VENLAFAXINE [Concomitant]
     Indication: BIPOLAR DISORDER
     Route: 065
  5. LAMOTRIGINE [Concomitant]
     Indication: BIPOLAR DISORDER
     Route: 065
  6. LITHIUM CARBONATE [Concomitant]
     Indication: BIPOLAR DISORDER
     Route: 065
  7. TRAZODONE HCL [Concomitant]
     Indication: BIPOLAR DISORDER
     Route: 065
  8. ONDANSETRON [Concomitant]
     Indication: URINARY TRACT INFECTION
     Route: 065
  9. CIPROFLOXACIN [Concomitant]
     Indication: URINARY TRACT INFECTION
     Route: 065
  10. ACETAMINOPHEN [Suspect]
     Route: 065
  11. BUPROPION HCL [Concomitant]
     Indication: BIPOLAR DISORDER
     Route: 065

REACTIONS (2)
  - HEPATIC ENZYME INCREASED [None]
  - TOXICITY TO VARIOUS AGENTS [None]
